FAERS Safety Report 19995879 (Version 1)
Quarter: 2021Q4

REPORT INFORMATION
  Report Type: Spontaneous
  Country: US (occurrence: US)
  Receive Date: 20211026
  Receipt Date: 20211026
  Transmission Date: 20220303
  Serious: Yes (Other)
  Sender: FDA-Public Use
  Company Number: None

PATIENT
  Age: 64 Year
  Sex: Male
  Weight: 91.58 kg

DRUGS (4)
  1. ARIPIPRAZOLE [Suspect]
     Active Substance: ARIPIPRAZOLE
     Indication: Delusion
     Route: 048
     Dates: start: 20210429, end: 20210611
  2. TRAZODONE [Concomitant]
     Active Substance: TRAZODONE HYDROCHLORIDE
  3. ATORVASTATIN [Concomitant]
     Active Substance: ATORVASTATIN
  4. DIVALPROEX SODIUM [Concomitant]
     Active Substance: DIVALPROEX SODIUM

REACTIONS (5)
  - Delusional perception [None]
  - Abnormal behaviour [None]
  - Insomnia [None]
  - Tangentiality [None]
  - Mania [None]

NARRATIVE: CASE EVENT DATE: 20210607
